FAERS Safety Report 18599673 (Version 1)
Quarter: 2020Q4

REPORT INFORMATION
  Report Type: Spontaneous
  Country: US (occurrence: US)
  Receive Date: 20201209
  Receipt Date: 20201209
  Transmission Date: 20210114
  Serious: Yes (Congenital Anomaly)
  Sender: FDA-Public Use
  Company Number: None

PATIENT
  Age: 30 Year
  Sex: Female
  Weight: 67.5 kg

DRUGS (1)
  1. PROMETHAZINE [Suspect]
     Active Substance: PROMETHAZINE HYDROCHLORIDE
     Indication: MORNING SICKNESS
     Route: 048
     Dates: start: 20160511, end: 20161201

REACTIONS (6)
  - Polydactyly [None]
  - Speech disorder [None]
  - Foetal exposure during pregnancy [None]
  - Cataract [None]
  - Cataract congenital [None]
  - Congenital anomaly [None]

NARRATIVE: CASE EVENT DATE: 20161226
